FAERS Safety Report 4549766-0 (Version None)
Quarter: 2004Q4

REPORT INFORMATION
  Report Type: 
  Country: None (occurrence: None)
  Receive Date: 20041227
  Receipt Date: 20040908
  Transmission Date: 20050328
  Serious: No
  Sender: FDA-Public Use
  Company Number: 04P-163-0273055-00

PATIENT
  Age: 67 Year
  Sex: Female
  Weight: 68.0396 kg

DRUGS (12)
  1. HUMIRA [Suspect]
     Indication: RHEUMATOID ARTHRITIS
     Dosage: 40 MG, 1 IN 2 WK, SUBCUTANEOUS
     Route: 058
     Dates: start: 20040101
  2. CALCIUM CARBONATE [Concomitant]
  3. ESTRADIOL [Concomitant]
  4. CLOCORTOLONE PIVALATE [Concomitant]
  5. LEVOTHYROXINE SODIUM [Concomitant]
  6. AMLODIPINE BESYLATE [Concomitant]
  7. IRBESARTAN [Concomitant]
  8. RABEPRAZOLE SODIUM [Concomitant]
  9. RISEDRONATE SODIUM [Concomitant]
  10. METOPROLOL SUCCINATE [Concomitant]
  11. MONTELUKAST SODIUM [Concomitant]
  12. MULTIVITAMIN [Concomitant]

REACTIONS (2)
  - INJECTION SITE HAEMORRHAGE [None]
  - INJECTION SITE PAIN [None]
